FAERS Safety Report 7528987 (Version 4)
Quarter: 2014Q2

REPORT INFORMATION
  Report Type: Spontaneous
  Country: US (occurrence: US)
  Receive Date: 20100805
  Receipt Date: 20140617
  Transmission Date: 20141212
  Serious: Yes (Congenital Anomaly)
  Sender: FDA-Public Use
  Company Number: US-ROCHE-668729

PATIENT
  Age: 12 Month
  Sex: 0
  Weight: 6 kg

DRUGS (4)
  1. PEGASYS [Suspect]
     Indication: HEPATITIS C
     Dosage: FORM: PRE-FILLED SYRINGE, ROUTE REPORTED AS SQ
     Route: 064
     Dates: start: 20091030, end: 20091109
  2. PEGASYS [Suspect]
     Route: 058
     Dates: start: 20090227, end: 20090618
  3. COPEGUS [Suspect]
     Indication: HEPATITIS C
     Dosage: DIVIDED DOSE
     Route: 064
     Dates: start: 20091030, end: 20091109
  4. COPEGUS [Suspect]
     Route: 065
     Dates: start: 20090227, end: 20090618

REACTIONS (2)
  - Trisomy 21 [Unknown]
  - Foetal exposure during pregnancy [Unknown]
